FAERS Safety Report 5706788-1 (Version None)
Quarter: 2008Q2

REPORT INFORMATION
  Report Type: 
  Country: None (occurrence: None)
  Receive Date: 20080415
  Receipt Date: 20080415
  Transmission Date: 20081010
  Serious: Yes (Other)
  Sender: FDA-Public Use
  Company Number: None

PATIENT
  Age: 6 Year
  Sex: Male
  Weight: 22.6799 kg

DRUGS (1)
  1. FLOVENT [Suspect]
     Indication: ASTHMA
     Dosage: 1-2 PUFFS VIA INHALER TWICE PER DAY
     Dates: start: 20080405, end: 20080412

REACTIONS (4)
  - IRRITABILITY [None]
  - LETHARGY [None]
  - MOOD ALTERED [None]
  - PERSONALITY CHANGE [None]
